FAERS Safety Report 22064568 (Version 2)
Quarter: 2023Q1

REPORT INFORMATION
  Report Type: Report from Study
  Country: EG (occurrence: EG)
  Receive Date: 20230306
  Receipt Date: 20230318
  Transmission Date: 20230417
  Serious: Yes (Other)
  Sender: FDA-Public Use
  Company Number: EG-002147023-NVSC2023EG045565

PATIENT
  Age: 36 Year
  Sex: Male

DRUGS (4)
  1. EXFORGE [Suspect]
     Active Substance: AMLODIPINE BESYLATE\VALSARTAN
     Indication: Hypertension
     Dosage: 1 DOSAGE FORM, QD (10/160)
     Route: 048
     Dates: start: 2022
  2. TACROLIMUS [Concomitant]
     Active Substance: TACROLIMUS
     Indication: Prophylaxis against transplant rejection
     Dosage: 6 DOSAGE FORM, BID (6 CAPSULES AT 10AM AND 6 CAPSULES AT 10PM)
     Route: 065
     Dates: start: 20230210
  3. PROGRAF [Concomitant]
     Active Substance: TACROLIMUS
     Indication: Product used for unknown indication
     Dosage: 3 CAPSULES IN THE MORNING AND 4 CAPSULES AT NIGHT
     Route: 065
     Dates: start: 20230120, end: 20230210
  4. PROGRAF [Concomitant]
     Active Substance: TACROLIMUS
     Dosage: 4 DOSAGE FORM, BID (4 IN THE MORNING AND 4 AT NIGHT)
     Route: 065

REACTIONS (2)
  - Ophthalmoplegia [Recovering/Resolving]
  - Vision blurred [Recovering/Resolving]

NARRATIVE: CASE EVENT DATE: 20220701
